FAERS Safety Report 8942112 (Version 1)
Quarter: 2012Q4

REPORT INFORMATION
  Report Type: 
  Country: FR (occurrence: FR)
  Receive Date: 20121130
  Receipt Date: 20121130
  Transmission Date: 20130627
  Serious: Yes (Life-Threatening)
  Sender: FDA-Public Use
  Company Number: FR-GLAXOSMITHKLINE-B0846188A

PATIENT
  Age: 84 Year
  Sex: Female

DRUGS (11)
  1. ARIXTRA [Suspect]
     Indication: THROMBOSIS PROPHYLAXIS
     Dosage: 7.5MG Per day
     Route: 058
     Dates: start: 201209
  2. PREVISCAN [Suspect]
     Indication: THROMBOSIS PROPHYLAXIS
     Dosage: 20MG Per day
     Route: 048
     Dates: start: 201209
  3. LEVOTHYROX [Concomitant]
     Dosage: 50MCG Per day
     Route: 048
  4. CALCIUM CARBONATE [Concomitant]
     Dosage: 500MG Per day
     Route: 048
  5. DOMPERIDONE [Concomitant]
     Dosage: 10MG Per day
     Route: 048
  6. MACROGOL [Concomitant]
     Dosage: 1UNIT Per day
     Route: 048
  7. ACTISKENAN [Concomitant]
     Dosage: 1CAP Per day
     Route: 048
  8. FERROUS SULPHATE [Concomitant]
     Dosage: 80MG Per day
     Route: 048
  9. PARACETAMOL [Concomitant]
     Dosage: 1G Four times per day
     Route: 048
  10. IDARAC [Concomitant]
     Dosage: 400MG Per day
     Route: 048
  11. ALTEIS [Concomitant]
     Dosage: 1UNIT Per day
     Route: 048

REACTIONS (5)
  - Haematoma [Unknown]
  - Anaemia [Recovered/Resolved]
  - International normalised ratio increased [Unknown]
  - Compartment syndrome [Unknown]
  - Prescribed overdose [Unknown]
